FAERS Safety Report 21917388 (Version 2)
Quarter: 2025Q3

REPORT INFORMATION
  Report Type: Spontaneous
  Country: AU (occurrence: AU)
  Receive Date: 20230126
  Receipt Date: 20250819
  Transmission Date: 20251021
  Serious: Yes (Death, Hospitalization)
  Sender: ROCHE
  Company Number: AU-ROCHE-3268288

PATIENT
  Age: 55 Year
  Sex: Male

DRUGS (9)
  1. MYCOPHENOLATE MOFETIL [Suspect]
     Active Substance: MYCOPHENOLATE MOFETIL
     Indication: Prophylaxis against transplant rejection
     Route: 065
  2. PREDNISONE [Suspect]
     Active Substance: PREDNISONE
     Indication: Prophylaxis against transplant rejection
     Route: 065
  3. TACROLIMUS [Suspect]
     Active Substance: TACROLIMUS
     Indication: Prophylaxis against transplant rejection
     Route: 065
  4. BELATACEPT [Suspect]
     Active Substance: BELATACEPT
     Indication: Prophylaxis against transplant rejection
     Route: 065
  5. HYDROCORTISONE [Suspect]
     Active Substance: HYDROCORTISONE
     Indication: Prophylaxis against transplant rejection
     Route: 065
  6. LABETALOL [Concomitant]
     Active Substance: LABETALOL
  7. NIFEDIPINE [Concomitant]
     Active Substance: NIFEDIPINE
  8. ASPIRIN [Concomitant]
     Active Substance: ASPIRIN
  9. ATORVASTATIN [Concomitant]
     Active Substance: ATORVASTATIN

REACTIONS (6)
  - Acute kidney injury [Fatal]
  - Septic shock [Fatal]
  - Disseminated tuberculosis [Fatal]
  - Cardiogenic shock [Fatal]
  - Septic cardiomyopathy [Fatal]
  - Myocarditis infectious [Fatal]
